FAERS Safety Report 4772310-X (Version None)
Quarter: 2005Q3

REPORT INFORMATION
  Report Type: 
  Country: None (occurrence: None)
  Receive Date: 20050919
  Receipt Date: 20050713
  Transmission Date: 20060218
  Serious: No
  Sender: FDA-Public Use
  Company Number: US-BRISTOL-MYERS SQUIBB COMPANY-13041322

PATIENT
  Age: 60 Year
  Sex: Male
  Weight: 133 kg

DRUGS (8)
  1. DEFINITY [Suspect]
     Indication: ECHOCARDIOGRAM
     Route: 040
     Dates: start: 20050713
  2. POTASSIUM CHLORURE [Concomitant]
  3. WARFARIN [Concomitant]
  4. LOVASTATIN [Concomitant]
  5. LOVASTATIN [Concomitant]
  6. LOVASTATIN [Concomitant]
  7. MULTI-VITAMIN [Concomitant]
  8. ATENOLOL [Concomitant]

REACTIONS (2)
  - ARTHRALGIA [None]
  - BACK PAIN [None]
